FAERS Safety Report 4529904-6 (Version None)
Quarter: 2004Q4

REPORT INFORMATION
  Report Type: 
  Country: None (occurrence: None)
  Receive Date: 20041217
  Receipt Date: 20041206
  Transmission Date: 20050328
  Serious: Yes (Other)
  Sender: FDA-Public Use
  Company Number: GB-ABBOTT-04P-167-0282539-00

PATIENT
  Age: 22 Year
  Sex: Female

DRUGS (4)
  1. SEVOFLURANE [Suspect]
     Indication: GENERAL ANAESTHESIA
  2. ONDANSETRON [Suspect]
     Indication: DRUG USE FOR UNKNOWN INDICATION
  3. PROPOFOL [Suspect]
     Indication: GENERAL ANAESTHESIA
  4. DIAMORPHINE [Suspect]
     Indication: DRUG USE FOR UNKNOWN INDICATION

REACTIONS (4)
  - DYSTONIA [None]
  - PRURITUS [None]
  - RASH MACULAR [None]
  - UNEVALUABLE EVENT [None]
